FAERS Safety Report 7201598-0 (Version None)
Quarter: 2010Q4

REPORT INFORMATION
  Report Type: 
  Country: None (occurrence: None)
  Receive Date: 20101214
  Receipt Date: 19980101
  Transmission Date: 20110411
  Serious: Yes (Death, Hospitalization)
  Sender: FDA-Public Use
  Company Number: CIO98000005

PATIENT
  Age: 82 Year
  Sex: Female
  Weight: 36 kg

DRUGS (1)
  1. PEPTO-BISMOL, FLAVOR UNKNOWN (BISMUTH SUBSALICYLATE 262 MG, CALCIUM CA [Suspect]
     Indication: ABDOMINAL PAIN
     Dosage: ORAL
     Route: 048

REACTIONS (39)
  - ABDOMINAL PAIN [None]
  - ACID BASE BALANCE ABNORMAL [None]
  - ACTIVATED PARTIAL THROMBOPLASTIN TIME PROLONGED [None]
  - ALTERED STATE OF CONSCIOUSNESS [None]
  - ANAEMIA [None]
  - ANALGESIC DRUG LEVEL INCREASED [None]
  - BLOOD CHLORIDE INCREASED [None]
  - CARBON DIOXIDE DECREASED [None]
  - CEREBRAL ATROPHY [None]
  - COAGULOPATHY [None]
  - CONDITION AGGRAVATED [None]
  - CONFUSIONAL STATE [None]
  - DEHYDRATION [None]
  - DEPRESSED LEVEL OF CONSCIOUSNESS [None]
  - DIARRHOEA [None]
  - DISORIENTATION [None]
  - DRUG ABUSE [None]
  - DRY SKIN [None]
  - DYSARTHRIA [None]
  - ENCEPHALOPATHY [None]
  - FAECES DISCOLOURED [None]
  - GASTROINTESTINAL INFLAMMATION [None]
  - GENERAL PHYSICAL HEALTH DETERIORATION [None]
  - HYPOPHAGIA [None]
  - INCORRECT DOSE ADMINISTERED [None]
  - LETHARGY [None]
  - LYMPHOCYTE PERCENTAGE DECREASED [None]
  - METABOLIC ACIDOSIS [None]
  - MUCOSAL DRYNESS [None]
  - NEUTROPHIL PERCENTAGE INCREASED [None]
  - PROTHROMBIN TIME PROLONGED [None]
  - PULMONARY OEDEMA [None]
  - RALES [None]
  - RESPIRATORY ALKALOSIS [None]
  - RESPIRATORY RATE INCREASED [None]
  - SKIN TURGOR DECREASED [None]
  - THERAPEUTIC AGENT TOXICITY [None]
  - WHITE BLOOD CELL COUNT INCREASED [None]
  - X-RAY GASTROINTESTINAL TRACT ABNORMAL [None]
